FAERS Safety Report 5801200-6 (Version None)
Quarter: 2008Q3

REPORT INFORMATION
  Report Type: 
  Country: None (occurrence: None)
  Receive Date: 20080707
  Receipt Date: 20080625
  Transmission Date: 20090109
  Serious: Yes (Death)
  Sender: FDA-Public Use
  Company Number: CA-JNJFOC-20050102232

PATIENT
  Sex: Female
  Weight: 38.28 kg

DRUGS (12)
  1. DURAGESIC-100 [Suspect]
     Indication: CANCER PAIN
     Route: 062
  2. ZOPICLONE [Concomitant]
  3. MORPHINE SULFATE [Concomitant]
  4. LORAZEPAM [Concomitant]
  5. TRAZODONE HCL [Concomitant]
  6. PAROXETINE HCL [Concomitant]
  7. OMEPRAZOLE [Concomitant]
  8. FUROSEMIDE [Concomitant]
  9. SENNOSIDES [Concomitant]
  10. DOCUSATE [Concomitant]
  11. INHALER [Concomitant]
  12. MORPHINE [Concomitant]

REACTIONS (2)
  - DRUG TOXICITY [None]
  - NARCOTIC INTOXICATION [None]
